FAERS Safety Report 20541247 (Version 1)
Quarter: 2022Q1

REPORT INFORMATION
  Report Type: Report from Study
  Country: PR (occurrence: PR)
  Receive Date: 20220302
  Receipt Date: 20220302
  Transmission Date: 20220423
  Serious: Yes (Hospitalization)
  Sender: FDA-Public Use
  Company Number: PR-JNJFOC-20211033793

PATIENT
  Age: 84 Year
  Sex: Male

DRUGS (1)
  1. APALUTAMIDE [Suspect]
     Active Substance: APALUTAMIDE
     Indication: Prostate cancer
     Route: 048
     Dates: start: 20210922

REACTIONS (2)
  - Chest pain [Recovering/Resolving]
  - Venous occlusion [Recovered/Resolved]

NARRATIVE: CASE EVENT DATE: 20211004
